FAERS Safety Report 7246404-3 (Version None)
Quarter: 2011Q1

REPORT INFORMATION
  Report Type: 
  Country: None (occurrence: None)
  Receive Date: 20110126
  Receipt Date: 20100506
  Transmission Date: 20110831
  Serious: No
  Sender: FDA-Public Use
  Company Number: US-BAUSCH-2010BL002381

PATIENT
  Age: 87 Year
  Sex: Female

DRUGS (2)
  1. ZYLET [Suspect]
     Indication: OCULAR HYPERAEMIA
     Route: 047
     Dates: start: 20100501, end: 20100502
  2. ZYLET [Suspect]
     Indication: EYE PRURITUS
     Route: 047
     Dates: start: 20100501, end: 20100502

REACTIONS (2)
  - EYE DISCHARGE [None]
  - OCULAR DISCOMFORT [None]
